FAERS Safety Report 6613175-0 (Version None)
Quarter: 2010Q1

REPORT INFORMATION
  Report Type: 
  Country: None (occurrence: None)
  Receive Date: 20100304
  Receipt Date: 20100217
  Transmission Date: 20100710
  Serious: No
  Sender: FDA-Public Use
  Company Number: US-JNJFOC-20100208572

PATIENT
  Sex: Male

DRUGS (3)
  1. FENTANYL-100 [Suspect]
     Indication: PAIN
     Route: 062
  2. DURAGESIC-100 [Suspect]
     Indication: PAIN
     Route: 062
  3. FENTANYL [Suspect]
     Indication: PAIN
     Route: 062

REACTIONS (3)
  - APPLICATION SITE BLEEDING [None]
  - APPLICATION SITE REACTION [None]
  - WRONG TECHNIQUE IN DRUG USAGE PROCESS [None]
